FAERS Safety Report 23218711 (Version 2)
Quarter: 2023Q4

REPORT INFORMATION
  Report Type: Spontaneous
  Country: US (occurrence: None)
  Receive Date: 20231122
  Receipt Date: 20231207
  Transmission Date: 20240109
  Serious: No
  Sender: FDA-Public Use
  Company Number: 2023A258376

PATIENT
  Age: 78 Year

DRUGS (2)
  1. BREZTRI [Suspect]
     Active Substance: BUDESONIDE\FORMOTEROL\GLYCOPYRROLATE
     Route: 055
     Dates: start: 20231001
  2. SYMBICORT [Suspect]
     Active Substance: BUDESONIDE\FORMOTEROL FUMARATE DIHYDRATE
     Dosage: UNKNOWN DOSE AND FREQUENCY UNKNOWN
     Route: 055
     Dates: start: 20200101, end: 20230930

REACTIONS (4)
  - Dyspnoea [Recovering/Resolving]
  - Wrong technique in device usage process [Recovered/Resolved]
  - Device physical property issue [Not Recovered/Not Resolved]
  - Device delivery system issue [Not Recovered/Not Resolved]

NARRATIVE: CASE EVENT DATE: 20231001
